FAERS Safety Report 9441486 (Version 2)
Quarter: 2013Q3

REPORT INFORMATION
  Report Type: Report from Study
  Country: DE (occurrence: DE)
  Receive Date: 20130805
  Receipt Date: 20130815
  Transmission Date: 20140515
  Serious: Yes (Death)
  Sender: FDA-Public Use
  Company Number: DE-ABBOTT-12P-062-0999093-00

PATIENT
  Age: 75 Year
  Sex: Male

DRUGS (4)
  1. TRENANTONE (LEUPRORELIN ACETATE FOR DEPOT SUSPENSION) [Suspect]
     Indication: PROSTATE CANCER
     Route: 058
     Dates: start: 20120216
  2. ZOMETA [Concomitant]
     Indication: PRODUCT USED FOR UNKNOWN INDICATION
     Dates: start: 20120824
  3. ARCOXIA [Concomitant]
     Indication: PRODUCT USED FOR UNKNOWN INDICATION
  4. METAMIZOLE [Concomitant]
     Indication: PRODUCT USED FOR UNKNOWN INDICATION

REACTIONS (4)
  - Prostate cancer [Fatal]
  - Haemoglobin decreased [Unknown]
  - Blood alkaline phosphatase increased [Unknown]
  - Urinary tract infection [Unknown]
